FAERS Safety Report 8821129 (Version 1)
Quarter: 2012Q4

REPORT INFORMATION
  Report Type: 
  Country: PL (occurrence: PL)
  Receive Date: 20121002
  Receipt Date: 20121002
  Transmission Date: 20130627
  Serious: Yes (Death, Hospitalization, Other)
  Sender: FDA-Public Use
  Company Number: PL-WATSON-2012-16996

PATIENT
  Age: 57 Year
  Sex: Male

DRUGS (4)
  1. PREDNISONE (UNKNOWN) [Suspect]
     Indication: PROPHYLAXIS AGAINST TRANSPLANT REJECTION
     Dosage: 4 mg AM, 3 mg PM
     Route: 065
  2. TACROLIMUS (UNKNOWN) [Suspect]
     Indication: PROPHYLAXIS AGAINST TRANSPLANT REJECTION
     Dosage: 4 mg AM, 3 mg PM
     Route: 048
  3. MYCOPHENOLATE MOFETIL (UNKNOWN) [Suspect]
     Indication: PROPHYLAXIS AGAINST TRANSPLANT REJECTION
     Dosage: 500 mg, bid
     Route: 065
  4. GANCICLOVIR [Suspect]
     Indication: CYTOMEGALOVIRUS INFECTION
     Dosage: UNK
     Route: 065

REACTIONS (3)
  - Pancytopenia [Not Recovered/Not Resolved]
  - Cardiac arrest [Fatal]
  - Metabolic acidosis [Recovered/Resolved]
